FAERS Safety Report 9844731 (Version 1)
Quarter: 2014Q1

REPORT INFORMATION
  Report Type: Spontaneous
  Country: US (occurrence: None)
  Receive Date: 20140122
  Receipt Date: 20140122
  Transmission Date: 20141002
  Serious: Yes (Death)
  Sender: FDA-Public Use
  Company Number: B0958519A

PATIENT
  Age: 21 Year
  Sex: Female

DRUGS (4)
  1. BUPROPION [Suspect]
     Route: 048
  2. OXYMORPHONE HYDROCHLORIDE [Suspect]
     Route: 048
  3. CLONAZEPAM (FORMULATION UNKNOWN) (GENERIC) (CLONAZEPAM) [Suspect]
     Route: 048
  4. ETHANOL [Suspect]
     Route: 048

REACTIONS (1)
  - Drug abuse [None]
